FAERS Safety Report 6012375-0 (Version None)
Quarter: 2008Q4

REPORT INFORMATION
  Report Type: 
  Country: None (occurrence: None)
  Receive Date: 20081218
  Receipt Date: 20080923
  Transmission Date: 20090506
  Serious: No
  Sender: FDA-Public Use
  Company Number: US-ASTRAZENECA-2008UW19947

PATIENT
  Age: 50 Year
  Sex: Male

DRUGS (1)
  1. SYMBICORT [Suspect]
     Route: 055
     Dates: start: 20080624

REACTIONS (6)
  - DEPRESSION [None]
  - DIZZINESS [None]
  - MUSCLE SPASMS [None]
  - OSTEOGENESIS IMPERFECTA [None]
  - PNEUMONIA [None]
  - UNRESPONSIVE TO STIMULI [None]
